FAERS Safety Report 10661189 (Version 5)
Quarter: 2015Q1

REPORT INFORMATION
  Report Type: Spontaneous
  Country: JP (occurrence: JP)
  Receive Date: 20141218
  Receipt Date: 20150305
  Transmission Date: 20150720
  Serious: Yes (Death, Life-Threatening, Hospitalization, Other)
  Sender: FDA-Public Use
  Company Number: JP-ELI_LILLY_AND_COMPANY-JP201412005254

PATIENT
  Age: 45 Year
  Sex: Male
  Weight: 36 kg

DRUGS (6)
  1. LEXOTAN [Concomitant]
     Active Substance: BROMAZEPAM
     Indication: MENTAL DISABILITY
     Dosage: 5 MG, BID
     Route: 048
     Dates: start: 20051005, end: 20130819
  2. ZYPREXA [Suspect]
     Active Substance: OLANZAPINE
     Indication: MENTAL DISABILITY
     Dosage: 5 MG, QD
     Route: 048
     Dates: start: 20050726, end: 20070909
  3. ZYPREXA [Suspect]
     Active Substance: OLANZAPINE
     Dosage: 10 MG, QD
     Route: 048
     Dates: start: 20131007, end: 20140312
  4. MEILAX [Concomitant]
     Active Substance: ETHYL LOFLAZEPATE
     Indication: MENTAL DISABILITY
     Dosage: 1 MG, QD
     Route: 048
     Dates: start: 20130820, end: 20130902
  5. ZYPREXA [Suspect]
     Active Substance: OLANZAPINE
     Dosage: 10 MG, QD
     Route: 048
     Dates: start: 20070910, end: 20130819
  6. ZYPREXA [Suspect]
     Active Substance: OLANZAPINE
     Dosage: 15 MG, QD
     Route: 048
     Dates: start: 20130820, end: 20131006

REACTIONS (13)
  - Disseminated intravascular coagulation [Unknown]
  - Septic shock [Unknown]
  - Adrenal insufficiency [Unknown]
  - Weight decreased [Unknown]
  - Malnutrition [Unknown]
  - Dehydration [Recovered/Resolved]
  - Pneumonia [Fatal]
  - Blood creatine phosphokinase increased [Recovered/Resolved]
  - Liver disorder [Unknown]
  - Off label use [Recovered/Resolved]
  - Hypoglycaemia [Recovering/Resolving]
  - White blood cell count decreased [Unknown]
  - Weight increased [Recovered/Resolved]

NARRATIVE: CASE EVENT DATE: 20050726
